FAERS Safety Report 8574899-1 (Version None)
Quarter: 2012Q3

REPORT INFORMATION
  Report Type: 
  Country: None (occurrence: None)
  Receive Date: 20120807
  Receipt Date: 20110809
  Transmission Date: 20120928
  Serious: Yes (Other)
  Sender: FDA-Public Use
  Company Number: US-MERCK-2011SP038450

PATIENT

DRUGS (2)
  1. RIBAVIRIN [Suspect]
     Indication: MATERNAL EXPOSURE DURING PREGNANCY
     Dosage: UNK UNK, UNKNOWN
     Route: 064
  2. PEGINTERFERON ALFA-2B [Suspect]
     Indication: MATERNAL EXPOSURE DURING PREGNANCY
     Dosage: UNK UNK, UNKNOWN
     Route: 064

REACTIONS (4)
  - CYANOSIS NEONATAL [None]
  - RESPIRATORY DISORDER NEONATAL [None]
  - STREPTOCOCCUS TEST POSITIVE [None]
  - FOETAL EXPOSURE DURING PREGNANCY [None]
